FAERS Safety Report 13608569 (Version 1)
Quarter: 2017Q2

REPORT INFORMATION
  Report Type: Spontaneous
  Country: JP (occurrence: JP)
  Receive Date: 20170602
  Receipt Date: 20170602
  Transmission Date: 20170830
  Serious: Yes (Other)
  Sender: FDA-Public Use
  Company Number: JP-PFIZER INC-2017238511

PATIENT
  Age: 4 Decade
  Sex: Female

DRUGS (1)
  1. VFEND [Suspect]
     Active Substance: VORICONAZOLE
     Dosage: 300 MG, 2X/DAY

REACTIONS (4)
  - Seizure [Unknown]
  - Hemiplegia [Unknown]
  - Disorientation [Unknown]
  - Headache [Unknown]
